FAERS Safety Report 16343209 (Version 1)
Quarter: 2019Q2

REPORT INFORMATION
  Report Type: Spontaneous
  Country: US (occurrence: US)
  Receive Date: 20190417
  Receipt Date: 20190417
  Transmission Date: 20190711
  Serious: No
  Sender: FDA-Public Use
  Company Number: None

PATIENT
  Age: 50 Year
  Sex: Female

DRUGS (1)
  1. CIMZIA [Suspect]
     Active Substance: CERTOLIZUMAB PEGOL
     Indication: RHEUMATOID ARTHRITIS
     Dosage: ?          OTHER FREQUENCY:EVERY 2 WKS AS DIR;?
     Route: 058
     Dates: start: 201807

REACTIONS (5)
  - Injection site pain [None]
  - Burning sensation [None]
  - Influenza like illness [None]
  - Injection site swelling [None]
  - Feeling hot [None]
